FAERS Safety Report 14089344 (Version 2)
Quarter: 2017Q4

REPORT INFORMATION
  Report Type: Spontaneous
  Country: AU (occurrence: AU)
  Receive Date: 20171013
  Receipt Date: 20171219
  Transmission Date: 20180321
  Serious: Yes (Hospitalization, Other)
  Sender: FDA-Public Use
  Company Number: AU-BAUSCH-BL-2017-028944

PATIENT
  Age: 77 Year
  Sex: Female

DRUGS (7)
  1. AMITRIPTYLINE [Concomitant]
     Active Substance: AMITRIPTYLINE
     Indication: PRODUCT USED FOR UNKNOWN INDICATION
     Dosage: AT NIGHT
  2. BUPRENORPHINE. [Concomitant]
     Active Substance: BUPRENORPHINE
     Indication: PRODUCT USED FOR UNKNOWN INDICATION
     Dosage: 20 MCG PER HOUR/PATCH
     Route: 062
  3. DIAZEPAM. [Suspect]
     Active Substance: DIAZEPAM
     Indication: PRODUCT USED FOR UNKNOWN INDICATION
     Dosage: NOCTE PRN (AT NIGHT AS NEEDED)
     Route: 065
  4. OXYCODONE [Suspect]
     Active Substance: OXYCODONE
     Indication: INSOMNIA
     Dosage: PRN (AS NECESSARY)
     Route: 065
  5. OXYCODONE [Suspect]
     Active Substance: OXYCODONE
     Dosage: ADDITIONAL PRN OXYCODONE TABLETS
     Route: 065
  6. SERTRALINE [Concomitant]
     Active Substance: SERTRALINE HYDROCHLORIDE
     Indication: PRODUCT USED FOR UNKNOWN INDICATION
  7. TEMAZEPAM. [Suspect]
     Active Substance: TEMAZEPAM
     Indication: PRODUCT USED FOR UNKNOWN INDICATION
     Dosage: NOCTE (AT NIGHT)
     Route: 065

REACTIONS (10)
  - Judgement impaired [Unknown]
  - Hypersomnia [Unknown]
  - Bruxism [Recovering/Resolving]
  - Anxiety [Unknown]
  - Abnormal behaviour [Unknown]
  - Dysarthria [Unknown]
  - Drug abuse [Unknown]
  - Impaired reasoning [Unknown]
  - Fall [Unknown]
  - Withdrawal syndrome [Unknown]
